FAERS Safety Report 15106385 (Version 1)
Quarter: 2018Q3

REPORT INFORMATION
  Report Type: Spontaneous
  Country: IT (occurrence: IT)
  Receive Date: 20180704
  Receipt Date: 20180704
  Transmission Date: 20181010
  Serious: Yes (Other)
  Sender: FDA-Public Use
  Company Number: IT-AUROBINDO-AUR-APL-2018-033585

PATIENT
  Age: 50 Year
  Sex: Female

DRUGS (1)
  1. IBUPROFEN FILM?COATED TABLETS [Suspect]
     Active Substance: IBUPROFEN
     Indication: MYALGIA
     Dosage: 3 DOSAGE FORM, ONCE A DAY
     Route: 048
     Dates: start: 20170719, end: 20170723

REACTIONS (2)
  - Drug abuse [Recovering/Resolving]
  - Abdominal pain upper [Recovering/Resolving]

NARRATIVE: CASE EVENT DATE: 20170723
